FAERS Safety Report 7898647-3 (Version None)
Quarter: 2011Q4

REPORT INFORMATION
  Report Type: 
  Country: None (occurrence: None)
  Receive Date: 20111101
  Receipt Date: 20101105
  Transmission Date: 20120403
  Serious: Yes (Other)
  Sender: FDA-Public Use
  Company Number: 254113USA

PATIENT
  Sex: Male

DRUGS (1)
  1. LEFLUNOMIDE [Suspect]
     Indication: RHEUMATOID ARTHRITIS
     Dosage: (20 MG), ORAL
     Route: 048
     Dates: start: 20100609, end: 20100730

REACTIONS (8)
  - PRODUCT FORMULATION ISSUE [None]
  - MUSCULOSKELETAL PAIN [None]
  - INSOMNIA [None]
  - PAIN [None]
  - ARTHRALGIA [None]
  - RHEUMATOID ARTHRITIS [None]
  - PAIN IN EXTREMITY [None]
  - HYPOKINESIA [None]
